FAERS Safety Report 6177474-1 (Version None)
Quarter: 2009Q2

REPORT INFORMATION
  Report Type: 
  Country: None (occurrence: None)
  Receive Date: 20090501
  Receipt Date: 20090501
  Transmission Date: 20091009
  Serious: No
  Sender: FDA-Public Use
  Company Number: None

PATIENT
  Age: 70 Year
  Sex: Male
  Weight: 90 kg

DRUGS (1)
  1. PERCOCET [Suspect]
     Indication: PAIN
     Dosage: 2 TAB (10/650) Q4 PRN
     Dates: start: 20090219, end: 20090221

REACTIONS (2)
  - PCO2 INCREASED [None]
  - SOMNOLENCE [None]
